FAERS Safety Report 6299048-4 (Version None)
Quarter: 2009Q3

REPORT INFORMATION
  Report Type: 
  Country: None (occurrence: None)
  Receive Date: 20090806
  Receipt Date: 20090731
  Transmission Date: 20100115
  Serious: Yes (Life-Threatening, Hospitalization)
  Sender: FDA-Public Use
  Company Number: FR-BRISTOL-MYERS SQUIBB COMPANY-14677470

PATIENT
  Age: 59 Year
  Sex: Female

DRUGS (9)
  1. ENDOXAN [Suspect]
     Indication: OVARIAN NEOPLASM
     Route: 042
     Dates: start: 20080101, end: 20080101
  2. BLEOMYCIN SULFATE [Suspect]
     Indication: OVARIAN NEOPLASM
     Route: 042
     Dates: start: 20080101, end: 20080101
  3. STAGID [Concomitant]
     Route: 048
  4. DIAMICRON [Concomitant]
     Route: 048
  5. KARDEGIC [Concomitant]
  6. LEXOMIL [Concomitant]
     Route: 048
  7. PRIMPERAN [Concomitant]
  8. DIFFU-K [Concomitant]
     Route: 048
  9. PREDNISOLONE [Concomitant]

REACTIONS (3)
  - CARDIOGENIC SHOCK [None]
  - COR PULMONALE ACUTE [None]
  - PULMONARY EMBOLISM [None]
